FAERS Safety Report 22323590 (Version 1)
Quarter: 2023Q2

REPORT INFORMATION
  Report Type: Spontaneous
  Country: ES (occurrence: ES)
  Receive Date: 20230516
  Receipt Date: 20230516
  Transmission Date: 20230722
  Serious: Yes (Life-Threatening)
  Sender: FDA-Public Use
  Company Number: None

PATIENT
  Age: 84 Year
  Sex: Female
  Weight: 43.9 kg

DRUGS (2)
  1. LENALIDOMIDE [Interacting]
     Active Substance: LENALIDOMIDE
     Indication: Diffuse large B-cell lymphoma
     Dosage: 15 MILLIGRAM, QD, 1 DAILY FOR 21 DAYS
     Route: 048
     Dates: start: 20221004, end: 202304
  2. TAFASITAMAB [Interacting]
     Active Substance: TAFASITAMAB
     Indication: Diffuse large B-cell lymphoma
     Dosage: 1 ADMINISTRATION EVERY 15 DAYS, DOSE UNKNOWN
     Route: 042
     Dates: start: 20221007, end: 20230401

REACTIONS (3)
  - Agranulocytosis [Recovered/Resolved]
  - Pneumonia pneumococcal [Recovered/Resolved]
  - Drug interaction [Unknown]

NARRATIVE: CASE EVENT DATE: 20230416
